FAERS Safety Report 5801216-X (Version None)
Quarter: 2008Q3

REPORT INFORMATION
  Report Type: 
  Country: None (occurrence: None)
  Receive Date: 20080707
  Receipt Date: 20080625
  Transmission Date: 20090109
  Serious: Yes (Hospitalization)
  Sender: FDA-Public Use
  Company Number: US-ELI_LILLY_AND_COMPANY-US200806005901

PATIENT
  Age: 15 Year
  Sex: Female
  Weight: 16.78 kg

DRUGS (4)
  1. ZYPREXA [Suspect]
     Indication: AGITATION
     Dosage: 2.5 MG, DAILY (1/D)
  2. ZYPREXA [Suspect]
     Dosage: 5 MG, 2/D
  3. ZYPREXA [Suspect]
     Dosage: 5 MG, EACH MORNING
  4. ZYPREXA [Suspect]
     Dosage: 10 MG, DAILY (1/D)

REACTIONS (2)
  - PURGING [None]
  - SEDATION [None]
